FAERS Safety Report 9919885 (Version 2)
Quarter: 2014Q2

REPORT INFORMATION
  Report Type: Spontaneous
  Country: US (occurrence: US)
  Receive Date: 20140224
  Receipt Date: 20140414
  Transmission Date: 20141212
  Serious: No
  Sender: FDA-Public Use
  Company Number: US-PFIZER INC-2014048565

PATIENT
  Age: 60 Year
  Sex: Female
  Weight: 107.94 kg

DRUGS (8)
  1. ADVIL [Suspect]
     Indication: PAIN
     Dosage: 200 MG, DAILY
  2. ASPIRIN [Concomitant]
     Indication: CARDIAC DISORDER
     Dosage: 3.5 MG, DAILY
  3. LOTREL [Concomitant]
     Indication: CARDIAC DISORDER
     Dosage: 5/20MG TWO TIMES A DAY
  4. METOPROLOL [Concomitant]
     Indication: CARDIAC DISORDER
     Dosage: 100 MG, TWO TIMES A DAY
  5. METFORMIN [Concomitant]
     Indication: DIABETES MELLITUS
     Dosage: 500 MG, FOUR TIMES A DAY
  6. HYDROCHLOROTHIAZIDE [Concomitant]
     Indication: HYPERTENSION
     Dosage: 25 MG, DAILY
  7. PAXIL [Concomitant]
     Indication: ANXIETY
     Dosage: 20 MG, DAILY
  8. SYNTHROID [Concomitant]
     Indication: HYPOTHYROIDISM
     Dosage: 150 MG, DAILY

REACTIONS (3)
  - Malaise [Unknown]
  - Nausea [Unknown]
  - Product odour abnormal [Unknown]
